FAERS Safety Report 9140027 (Version 1)
Quarter: 2013Q1

REPORT INFORMATION
  Report Type: Spontaneous
  Country: US (occurrence: US)
  Receive Date: 20130305
  Receipt Date: 20130305
  Transmission Date: 20140127
  Serious: Yes (Hospitalization, Other)
  Sender: FDA-Public Use
  Company Number: US-SANOFI-AVENTIS-2013SA021138

PATIENT
  Age: 59 Year
  Sex: Male

DRUGS (3)
  1. LANTUS [Suspect]
     Indication: TYPE 1 DIABETES MELLITUS
  2. LANTUS SOLOSTAR [Suspect]
     Dosage: DOSE:60 UNIT(S)
     Route: 051
     Dates: start: 2011
  3. SOLOSTAR [Suspect]
     Indication: TYPE 1 DIABETES MELLITUS
     Dates: start: 2011

REACTIONS (3)
  - Localised infection [Unknown]
  - Localised infection [Unknown]
  - Adverse event [Unknown]
